FAERS Safety Report 17076060 (Version 1)
Quarter: 2019Q4

REPORT INFORMATION
  Report Type: Spontaneous
  Country: DE (occurrence: DE)
  Receive Date: 20191126
  Receipt Date: 20191126
  Transmission Date: 20200122
  Serious: Yes (Other)
  Sender: FDA-Public Use
  Company Number: DE-MYLANLABS-2019M1110843

PATIENT
  Age: 56 Year
  Sex: Female
  Weight: 55 kg

DRUGS (3)
  1. NOVOPULMON E NOVOLIZER [Suspect]
     Active Substance: BUDESONIDE
     Indication: CHRONIC OBSTRUCTIVE PULMONARY DISEASE
     Dosage: 1, BID (1-0-1)
     Dates: start: 20191024, end: 20191105
  2. FORMOTEROL [Concomitant]
     Active Substance: FORMOTEROL
     Indication: CHRONIC OBSTRUCTIVE PULMONARY DISEASE
     Dosage: 1, BID (1-0-1)
     Dates: start: 2010
  3. SALBUTAMOL [Concomitant]
     Active Substance: ALBUTEROL
     Indication: ASTHMA
     Dosage: UNK
     Dates: start: 2010

REACTIONS (2)
  - Product physical issue [Unknown]
  - Haemoptysis [Recovered/Resolved]

NARRATIVE: CASE EVENT DATE: 20191103
